FAERS Safety Report 7700346-5 (Version None)
Quarter: 2011Q3

REPORT INFORMATION
  Report Type: 
  Country: None (occurrence: None)
  Receive Date: 20110822
  Receipt Date: 20110812
  Transmission Date: 20111222
  Serious: Yes (Hospitalization, Other)
  Sender: FDA-Public Use
  Company Number: PHEH2007US03717

PATIENT
  Sex: Female
  Weight: 93.787 kg

DRUGS (40)
  1. PAXIL [Concomitant]
     Dosage: 60 MG,
  2. LASIX [Concomitant]
     Dosage: 20 MG,
  3. LORTAB [Concomitant]
     Dosage: 7.5/500 MG,
  4. DRISDOL [Concomitant]
  5. LOMOTIL [Concomitant]
  6. INSULIN [Concomitant]
  7. FLUVACCIN [Concomitant]
  8. ZOSTRIX [Concomitant]
  9. K-TAB [Concomitant]
     Dosage: 10 MEQ, QID
  10. MAGNESIUM OXIDE [Concomitant]
     Dosage: 800 MG, BID
     Route: 048
  11. CLARITIN [Concomitant]
  12. CLONAZEPAM [Concomitant]
     Dosage: 0.5MG QAM AND 1.0MG QPM
  13. REGLAN [Concomitant]
     Dosage: 10 MG,
  14. INNOHEP                                 /GFR/ [Concomitant]
  15. OXYCODONE HCL AND ACETAMINOPHEN [Concomitant]
  16. ALDACTONE [Concomitant]
  17. M.V.I. [Concomitant]
     Dosage: 1 DF, QD
  18. CARVEDILOL [Concomitant]
     Dosage: 25 MG,
  19. ROBAXIN [Concomitant]
     Dosage: 750 MG, PRN
  20. CORTEF                                  /CAN/ [Concomitant]
     Dosage: 10 MG, QD
  21. NEURONTIN [Concomitant]
  22. NORVASC [Concomitant]
  23. ZOMETA [Suspect]
     Indication: MULTIPLE MYELOMA
     Route: 042
  24. TRAZODONE HCL [Concomitant]
     Dosage: 100 MG, QHS
     Route: 048
  25. FOSINOPRIL SODIUM [Concomitant]
     Dosage: 40 MG, QD
     Route: 048
  26. FENTANYL [Concomitant]
     Dosage: 25 UG, QH
     Route: 062
  27. CIPROFLOXACIN [Concomitant]
     Dosage: 500 MG,
  28. DECADRON [Concomitant]
     Dosage: 4 MG, PRN
  29. CYANOCOBALAMIN [Concomitant]
  30. MORPHINE [Concomitant]
  31. ACETAMINOPHEN AND HYDROCODONE BITARTRATE [Concomitant]
     Dosage: 10/500MG,
  32. MULTI-VITAMINS [Concomitant]
  33. DURAGESIC-100 [Concomitant]
     Dosage: 25 UG, PRN
  34. MONOPRIL [Concomitant]
  35. PNEUMOVAX 23 [Concomitant]
  36. XANAX [Concomitant]
     Dosage: 0.5 MG, BID
     Route: 048
  37. COREG [Concomitant]
     Dosage: 2 DF, BID
  38. POTASSIUM CHLORIDE [Concomitant]
  39. KLONOPIN [Concomitant]
  40. ULTRAM [Concomitant]

REACTIONS (59)
  - PAIN [None]
  - ANXIETY [None]
  - ORAL PAIN [None]
  - EATING DISORDER [None]
  - DILATATION ATRIAL [None]
  - AORTIC VALVE DISEASE [None]
  - SWELLING FACE [None]
  - VOMITING [None]
  - DECREASED INTEREST [None]
  - INFLAMMATION [None]
  - PERICARDIAL EFFUSION [None]
  - TRICUSPID VALVE INCOMPETENCE [None]
  - ABSCESS [None]
  - NAUSEA [None]
  - MITRAL VALVE DISEASE [None]
  - GINGIVAL ERYTHEMA [None]
  - ORAL DISCOMFORT [None]
  - OSTEONECROSIS OF JAW [None]
  - DEEP VEIN THROMBOSIS [None]
  - MOUTH ULCERATION [None]
  - GINGIVAL INFECTION [None]
  - MIGRAINE [None]
  - ADDISON'S DISEASE [None]
  - CONGESTIVE CARDIOMYOPATHY [None]
  - HYPERKALAEMIA [None]
  - PALPITATIONS [None]
  - EDENTULOUS [None]
  - BACTERAEMIA [None]
  - TENDERNESS [None]
  - DEPRESSION [None]
  - THALASSAEMIA BETA [None]
  - AORTIC VALVE INCOMPETENCE [None]
  - INTERVERTEBRAL DISC DEGENERATION [None]
  - DIARRHOEA [None]
  - OEDEMA [None]
  - SUBACUTE ENDOCARDITIS [None]
  - DENTAL CARIES [None]
  - STOMATITIS [None]
  - DENTAL FISTULA [None]
  - INJURY [None]
  - OSTEOMYELITIS [None]
  - ADRENAL INSUFFICIENCY [None]
  - BREAST CALCIFICATIONS [None]
  - DIABETES MELLITUS [None]
  - LEFT VENTRICULAR HYPERTROPHY [None]
  - EJECTION FRACTION DECREASED [None]
  - BACK PAIN [None]
  - CARDIAC FAILURE CONGESTIVE [None]
  - BREAST CYST [None]
  - DYSPNOEA EXERTIONAL [None]
  - MITRAL VALVE INCOMPETENCE [None]
  - BONE DISORDER [None]
  - DIVERTICULUM INTESTINAL [None]
  - DILATATION VENTRICULAR [None]
  - PULMONARY VALVE INCOMPETENCE [None]
  - SLEEP DISORDER [None]
  - TOOTH FRACTURE [None]
  - TOOTH ABSCESS [None]
  - PNEUMONIA [None]
